FAERS Safety Report 7685222-9 (Version None)
Quarter: 2011Q3

REPORT INFORMATION
  Report Type: 
  Country: None (occurrence: None)
  Receive Date: 20110811
  Receipt Date: 20110727
  Transmission Date: 20111222
  Serious: Yes (Other)
  Sender: FDA-Public Use
  Company Number: 2011AP001600

PATIENT
  Age: 45 Year
  Sex: Male

DRUGS (6)
  1. ACETAMINOPHEN [Concomitant]
  2. LANSOPRAZOLE [Concomitant]
  3. DICLOFENAC SODIUIM (DICLOFENAC SODIUM) [Concomitant]
  4. AMITRIPTYLINE HYDROCHLORIDE [Concomitant]
  5. CODEINE PHOSPHATE (CODEINE PHOSPHATE) [Concomitant]
  6. TOPIRAMATE [Suspect]
     Indication: PRODUCT USED FOR UNKNOWN INDICATION

REACTIONS (2)
  - FURUNCLE [None]
  - RASH [None]
